FAERS Safety Report 5486351-0 (Version None)
Quarter: 2007Q4

REPORT INFORMATION
  Report Type: 
  Country: None (occurrence: None)
  Receive Date: 20071016
  Receipt Date: 20071002
  Transmission Date: 20080405
  Serious: Yes (Other)
  Sender: FDA-Public Use
  Company Number: US-ELI_LILLY_AND_COMPANY-US200710000536

PATIENT
  Age: 55 Year
  Sex: Female

DRUGS (12)
  1. CYMBALTA [Suspect]
     Indication: DEPRESSION
     Dosage: 30 MG, UNK
     Dates: start: 20070501
  2. BENICAR [Concomitant]
     Dosage: 40 MG, UNK
  3. ZANTAC [Concomitant]
     Dosage: 75 MG, 2/D
     Route: 048
  4. FLEXERIL [Concomitant]
     Dosage: 10 MG, UNK
  5. PROGESTERONE [Concomitant]
     Dosage: 100 MG, UNK
  6. MAGNESIUM SULFATE [Concomitant]
  7. MULTI-VITAMIN [Concomitant]
  8. CALCIUM [Concomitant]
  9. VITAMIN D [Concomitant]
  10. PROMEGA [Concomitant]
  11. DHEA [Concomitant]
  12. SELENIUM SULFIDE [Concomitant]

REACTIONS (4)
  - APPENDICITIS [None]
  - BLOOD PRESSURE INCREASED [None]
  - CONSTIPATION [None]
  - WEIGHT DECREASED [None]
